FAERS Safety Report 15109051 (Version 3)
Quarter: 2021Q1

REPORT INFORMATION
  Report Type: Other
  Country: US (occurrence: US)
  Receive Date: 20180705
  Receipt Date: 20210205
  Transmission Date: 20210419
  Serious: Yes (Other)
  Sender: FDA-Public Use
  Company Number: US-ROCHE-2146535

PATIENT
  Age: 39 Year
  Sex: Female
  Weight: 95.34 kg

DRUGS (9)
  1. OCREVUS [Suspect]
     Active Substance: OCRELIZUMAB
     Dosage: UNKNOWN
     Route: 042
     Dates: start: 201801
  2. OCREVUS [Suspect]
     Active Substance: OCRELIZUMAB
     Indication: PRIMARY PROGRESSIVE MULTIPLE SCLEROSIS
     Route: 042
     Dates: start: 2017
  3. KEPPRA [Concomitant]
     Active Substance: LEVETIRACETAM
     Dosage: AT NIGHT DOSE
     Route: 048
  4. MEDICAL MARIJUANA [Concomitant]
     Active Substance: CANNABIS SATIVA SUBSP. INDICA TOP
     Indication: PAIN
     Route: 055
  5. PERCOCET [Concomitant]
     Active Substance: ACETAMINOPHEN\OXYCODONE HYDROCHLORIDE
     Indication: PAIN
     Route: 048
  6. DULOXETINE. [Concomitant]
     Active Substance: DULOXETINE
     Route: 048
  7. KEPPRA [Concomitant]
     Active Substance: LEVETIRACETAM
     Dosage: IN THE MORNING DOSE
     Route: 048
  8. OCREVUS [Suspect]
     Active Substance: OCRELIZUMAB
     Route: 042
     Dates: start: 20180122
  9. METFORMIN [Concomitant]
     Active Substance: METFORMIN HYDROCHLORIDE
     Route: 048

REACTIONS (15)
  - Glycosylated haemoglobin decreased [Unknown]
  - Pain [Not Recovered/Not Resolved]
  - Memory impairment [Not Recovered/Not Resolved]
  - Cystitis [Unknown]
  - Tremor [Unknown]
  - Confusional state [Unknown]
  - Frustration tolerance decreased [Unknown]
  - Depression [Unknown]
  - Blood glucose decreased [Unknown]
  - Drug ineffective [Unknown]
  - Disturbance in attention [Unknown]
  - Anger [Unknown]
  - Headache [Unknown]
  - Crying [Unknown]
  - Emotional disorder [Unknown]

NARRATIVE: CASE EVENT DATE: 2018
